FAERS Safety Report 7232735-X (Version None)
Quarter: 2011Q1

REPORT INFORMATION
  Report Type: 
  Country: None (occurrence: None)
  Receive Date: 20110119
  Receipt Date: 20110103
  Transmission Date: 20110831
  Serious: Yes (Other)
  Sender: FDA-Public Use
  Company Number: US-PFIZER INC-US-WYE-H15902610

PATIENT
  Sex: Female
  Weight: 100 kg

DRUGS (5)
  1. LYRICA [Suspect]
     Indication: FIBROMYALGIA
     Dosage: UNK
     Route: 065
     Dates: start: 20080101, end: 20080101
  2. REGLAN [Suspect]
     Indication: GASTROOESOPHAGEAL REFLUX DISEASE
     Route: 048
  3. EFFEXOR [Suspect]
     Indication: FIBROMYALGIA
     Route: 048
  4. GABAPENTIN [Suspect]
     Indication: FIBROMYALGIA
     Route: 048
  5. PRILOSEC [Suspect]
     Indication: GASTROOESOPHAGEAL REFLUX DISEASE
     Route: 048

REACTIONS (4)
  - UNEVALUABLE EVENT [None]
  - PARKINSONISM [None]
  - DYSPHONIA [None]
  - TREMOR [None]
